FAERS Safety Report 23894333 (Version 3)
Quarter: 2024Q3

REPORT INFORMATION
  Report Type: Report from Study
  Country: US (occurrence: US)
  Receive Date: 20240524
  Receipt Date: 20240722
  Transmission Date: 20241017
  Serious: No
  Sender: ACADIA PHARMACEUTICALS
  Company Number: US-ACADIA PHARMACEUTICALS INC.-ACA-2024-TRF-002163

PATIENT
  Age: 6 Year
  Sex: Female
  Weight: 12 kg

DRUGS (1)
  1. DAYBUE [Suspect]
     Active Substance: TROFINETIDE
     Indication: Rett syndrome
     Dosage: 30 MILLILITER, BID
     Route: 048
     Dates: start: 202404

REACTIONS (3)
  - Nausea [Not Recovered/Not Resolved]
  - Hypophagia [Not Recovered/Not Resolved]
  - Vomiting [Recovered/Resolved]

NARRATIVE: CASE EVENT DATE: 20240401
